FAERS Safety Report 5585818-4 (Version None)
Quarter: 2007Q4

REPORT INFORMATION
  Report Type: 
  Country: None (occurrence: None)
  Receive Date: 20071205
  Receipt Date: 20070815
  Transmission Date: 20080405
  Serious: Yes (Hospitalization, Other)
  Sender: FDA-Public Use
  Company Number: HQWYE575316AUG07

PATIENT
  Sex: Female

DRUGS (2)
  1. EFFEXOR XR [Suspect]
     Indication: DEPRESSION
     Dosage: OVERDOSE AMOUNT UNKNOWN, ORAL
     Route: 048
     Dates: start: 20070808, end: 20070808
  2. CANNABIS (CANNABIS) [Concomitant]

REACTIONS (5)
  - COMA [None]
  - HYPOVENTILATION [None]
  - INTENTIONAL OVERDOSE [None]
  - SUICIDE ATTEMPT [None]
  - VOMITING [None]
